FAERS Safety Report 9165217 (Version 1)
Quarter: 2013Q1

REPORT INFORMATION
  Report Type: Spontaneous
  Country: JP (occurrence: JP)
  Receive Date: 20130315
  Receipt Date: 20130315
  Transmission Date: 20140127
  Serious: Yes (Other)
  Sender: FDA-Public Use
  Company Number: JP-ASTELLAS-2013JP003838

PATIENT
  Age: 28 Year
  Sex: Female

DRUGS (4)
  1. PROGRAF [Suspect]
     Indication: TAKAYASU^S ARTERITIS
     Route: 065
  2. PREDONINE                          /00016201/ [Concomitant]
     Indication: TAKAYASU^S ARTERITIS
     Dosage: 40 MG, UNKNOWN/D
     Route: 065
  3. METHOTREXATE [Concomitant]
     Indication: TAKAYASU^S ARTERITIS
     Route: 065
  4. METHOTREXATE [Concomitant]
     Route: 065

REACTIONS (2)
  - Drug ineffective for unapproved indication [Unknown]
  - Takayasu^s arteritis [Recovering/Resolving]
